FAERS Safety Report 10344111 (Version 2)
Quarter: 2014Q3

REPORT INFORMATION
  Report Type: Report from Study
  Country: FR (occurrence: None)
  Receive Date: 20140724
  Receipt Date: 20140724
  Transmission Date: 20150326
  Serious: Yes (Hospitalization)
  Sender: FDA-Public Use
  Company Number: FR-2014-2569

PATIENT
  Age: 6 Month
  Sex: Male
  Weight: 10 kg

DRUGS (1)
  1. CHLORHYDRATE DE PROPRANOLOL PIERRE FABRE DERMATOLOGIE (PROPRANOLOL) ORAL SOLUTION [Suspect]
     Active Substance: PROPRANOLOL HYDROCHLORIDE
     Indication: HAEMANGIOMA
     Route: 048
     Dates: start: 20140206, end: 20140403

REACTIONS (6)
  - Bronchiolitis [None]
  - Infantile asthma [None]
  - Lung disorder [None]
  - Otitis media acute [None]
  - Asthma [None]
  - Gastroenteritis rotavirus [None]

NARRATIVE: CASE EVENT DATE: 20140403
